FAERS Safety Report 23750316 (Version 1)
Quarter: 2024Q2

REPORT INFORMATION
  Report Type: Other
  Country: US (occurrence: None)
  Receive Date: 20240417
  Receipt Date: 20240417
  Transmission Date: 20240716
  Serious: Yes (Hospitalization)
  Sender: FDA-Public Use
  Company Number: US-ROCHE-3541416

PATIENT
  Age: 57 Year
  Sex: Female
  Weight: 46.308 kg

DRUGS (4)
  1. OCREVUS [Suspect]
     Active Substance: OCRELIZUMAB
     Indication: Relapsing multiple sclerosis
     Dosage: 300MG  X 1, REPEAT 300 MG, IN 2 WEEKS, AND 600MG X 1  EVERY 6 MONTHS, AN INFUSION OVER 5 HOURS, THE
     Route: 042
     Dates: start: 202210
  2. BENADRYL [Concomitant]
     Active Substance: DIPHENHYDRAMINE HYDROCHLORIDE
  3. ROPINIROLE [Concomitant]
     Active Substance: ROPINIROLE
  4. DALFAMPRIDINE [Concomitant]
     Active Substance: DALFAMPRIDINE

REACTIONS (3)
  - Movement disorder [Recovered/Resolved]
  - COVID-19 [Unknown]
  - Asthenia [Unknown]

NARRATIVE: CASE EVENT DATE: 20231107
